FAERS Safety Report 8345306-9 (Version None)
Quarter: 2012Q2

REPORT INFORMATION
  Report Type: 
  Country: None (occurrence: None)
  Receive Date: 20120508
  Receipt Date: 20120427
  Transmission Date: 20120825
  Serious: Yes (Other)
  Sender: FDA-Public Use
  Company Number: JP-VERTEX PHARMACEUTICALS INC.-AE-2012-006329

PATIENT
  Age: 64 Year
  Sex: Female

DRUGS (9)
  1. RIBAVIRIN [Concomitant]
     Route: 048
     Dates: start: 20120319, end: 20120322
  2. URSO 250 [Concomitant]
     Route: 048
  3. PEGINTERFERON ALFA-2B [Concomitant]
     Indication: HEPATITIS C
     Route: 051
     Dates: start: 20120309, end: 20120329
  4. RIBAVIRIN [Concomitant]
     Indication: HEPATITIS C
     Route: 048
     Dates: start: 20120309, end: 20120318
  5. TELAVIC (TELAPREVIR) [Suspect]
     Route: 048
     Dates: start: 20120316
  6. PEGINTERFERON ALFA-2B [Concomitant]
     Route: 051
     Dates: start: 20120330
  7. TELAVIC (TELAPREVIR) [Suspect]
     Indication: HEPATITIS C
     Route: 048
     Dates: start: 20120309, end: 20120315
  8. RIBAVIRIN [Concomitant]
     Route: 048
     Dates: start: 20120323
  9. CADUET NO. 1 [Concomitant]
     Route: 048

REACTIONS (4)
  - ANAEMIA [None]
  - DECREASED APPETITE [None]
  - HYPERURICAEMIA [None]
  - NAUSEA [None]
